FAERS Safety Report 6213230-3 (Version None)
Quarter: 2009Q2

REPORT INFORMATION
  Report Type: 
  Country: None (occurrence: None)
  Receive Date: 20090603
  Receipt Date: 20090528
  Transmission Date: 20091009
  Serious: Yes (Death)
  Sender: FDA-Public Use
  Company Number: US-GILEAD-2009-0022206

PATIENT
  Sex: Male
  Weight: 91.708 kg

DRUGS (14)
  1. LETAIRIS [Suspect]
     Indication: PULMONARY ARTERIAL HYPERTENSION
     Route: 048
     Dates: start: 20080222
  2. LASIX [Concomitant]
  3. SPIRONOLACTONE [Concomitant]
  4. TOPROL-XL [Concomitant]
  5. SOTALOL HYDROCHLORIDE [Concomitant]
  6. NORVASC [Concomitant]
  7. DIGOXIN [Concomitant]
  8. CLARINEX [Concomitant]
  9. CALCIUM +D [Concomitant]
  10. TRICOR [Concomitant]
  11. MIRALAX [Concomitant]
  12. FEOSOL [Concomitant]
  13. NASACORT [Concomitant]
  14. PREVACID [Concomitant]

REACTIONS (1)
  - DEATH [None]
